FAERS Safety Report 21778488 (Version 1)
Quarter: 2022Q4

REPORT INFORMATION
  Report Type: Report from Study
  Country: MX (occurrence: MX)
  Receive Date: 20221226
  Receipt Date: 20221226
  Transmission Date: 20230113
  Serious: Yes (Disabling)
  Sender: FDA-Public Use
  Company Number: MX-ABBVIE-4231645

PATIENT
  Age: 18 Year
  Sex: Female
  Weight: 60 kg

DRUGS (6)
  1. HUMIRA [Suspect]
     Active Substance: ADALIMUMAB
     Indication: Juvenile idiopathic arthritis
     Route: 058
     Dates: start: 20201219, end: 202210
  2. KARET [Concomitant]
     Indication: Hypothyroidism
  3. CYANOCOBALAMIN\FOLIC ACID\PYRIDOXINE HYDROCHLORIDE [Concomitant]
     Active Substance: CYANOCOBALAMIN\FOLIC ACID\PYRIDOXINE HYDROCHLORIDE
     Indication: Juvenile idiopathic arthritis
     Dates: start: 2019
  4. Lafasul [Concomitant]
     Indication: Juvenile idiopathic arthritis
     Dates: start: 2019
  5. METHOTREXATE [Concomitant]
     Active Substance: METHOTREXATE
     Indication: Juvenile idiopathic arthritis
     Dates: start: 2019
  6. LOSINON [Concomitant]
     Indication: Juvenile idiopathic arthritis
     Dates: start: 20221221

REACTIONS (6)
  - Joint stiffness [Recovering/Resolving]
  - Generalised oedema [Not Recovered/Not Resolved]
  - Feeling abnormal [Not Recovered/Not Resolved]
  - Arthralgia [Not Recovered/Not Resolved]
  - Arthritis [Unknown]
  - Mobility decreased [Unknown]

NARRATIVE: CASE EVENT DATE: 20221001
